FAERS Safety Report 18907872 (Version 5)
Quarter: 2021Q2

REPORT INFORMATION
  Report Type: Spontaneous
  Country: US (occurrence: US)
  Receive Date: 20210218
  Receipt Date: 20210422
  Transmission Date: 20210717
  Serious: Yes (Other)
  Sender: FDA-Public Use
  Company Number: US-B.I. PHARMACEUTICALS,INC./RIDGEFIELD-2021-BI-083017

PATIENT
  Sex: Female

DRUGS (1)
  1. SPIRIVA [Suspect]
     Active Substance: TIOTROPIUM BROMIDE MONOHYDRATE
     Indication: LUNG DISORDER
     Route: 055

REACTIONS (5)
  - Incorrect dose administered [Recovered/Resolved]
  - Extra dose administered [Unknown]
  - Product physical issue [Unknown]
  - Dementia [Not Recovered/Not Resolved]
  - Product quality issue [Unknown]
